FAERS Safety Report 10025023 (Version 2)
Quarter: 2014Q1

REPORT INFORMATION
  Report Type: Spontaneous
  Country: US (occurrence: None)
  Receive Date: 20140314
  Receipt Date: 20140318
  Transmission Date: 20141002
  Serious: Yes (Other)
  Sender: FDA-Public Use
  Company Number: AUR-APL-2014-02481

PATIENT
  Age: 52 Year
  Sex: Female
  Weight: 80.74 kg

DRUGS (4)
  1. DULOXETINE [Suspect]
     Indication: PRODUCT USED FOR UNKNOWN INDICATION
     Dosage: STOPPED
     Route: 048
  2. TOPAMAX (TOPIRAMATE) [Concomitant]
  3. GABAPENTIN (GABAPENTIN) [Concomitant]
  4. CLOZAPINE (CLOZAPINE) [Concomitant]

REACTIONS (2)
  - Depression [None]
  - Product substitution issue [None]
